FAERS Safety Report 8434435-7 (Version None)
Quarter: 2012Q2

REPORT INFORMATION
  Report Type: 
  Country: None (occurrence: None)
  Receive Date: 20120614
  Receipt Date: 20120605
  Transmission Date: 20120825
  Serious: Yes (Death, Hospitalization)
  Sender: FDA-Public Use
  Company Number: CN-BRISTOL-MYERS SQUIBB COMPANY-16443988

PATIENT
  Age: 54 Year
  Sex: Female

DRUGS (5)
  1. CISPLATIN [Suspect]
     Indication: NON-SMALL CELL LUNG CANCER
     Route: 042
     Dates: start: 20110602, end: 20110630
  2. DEXAMETHASONE [Concomitant]
     Dates: start: 20110601
  3. VITAMIN B-12 [Concomitant]
     Dates: start: 20110327
  4. ALIMTA [Suspect]
     Indication: NON-SMALL CELL LUNG CANCER
     Route: 042
     Dates: start: 20110602, end: 20110630
  5. FOLIC ACID [Concomitant]
     Dates: start: 20110327

REACTIONS (2)
  - NEOPLASM MALIGNANT [None]
  - RADIATION PNEUMONITIS [None]
